FAERS Safety Report 7084608-3 (Version None)
Quarter: 2010Q4

REPORT INFORMATION
  Report Type: 
  Country: None (occurrence: None)
  Receive Date: 20101104
  Receipt Date: 20101022
  Transmission Date: 20110411
  Serious: Yes (Hospitalization)
  Sender: FDA-Public Use
  Company Number: PHHY2010SE71147

PATIENT
  Sex: Female

DRUGS (11)
  1. TEGRETOL [Suspect]
     Dosage: 200 MG DAILY
     Dates: start: 20100818
  2. TEGRETOL [Interacting]
     Dosage: 600 MG DAILY
     Dates: start: 20100816
  3. TEGRETOL [Interacting]
     Dosage: 200 MG X 2
     Dates: end: 20100904
  4. FLAGYL [Interacting]
     Dosage: 800 MG DAILY
     Dates: start: 20100830, end: 20100904
  5. KLACID [Interacting]
     Dosage: 1 GM DAILY
     Dates: start: 20100830, end: 20100904
  6. CIPRALEX [Concomitant]
  7. RISPERDAL [Concomitant]
     Dosage: 0.5 MG, UNK
     Route: 048
  8. OMEPRAZOLE [Concomitant]
  9. LEVOTHYROXINE SODIUM [Concomitant]
     Dosage: 50 MICROGRAM
  10. PREDNISOLON [Concomitant]
  11. PANODIL FORTE [Concomitant]

REACTIONS (8)
  - ANTICONVULSANT DRUG LEVEL INCREASED [None]
  - ASTHENIA [None]
  - DIZZINESS [None]
  - DRUG INTERACTION [None]
  - FATIGUE [None]
  - GASTROINTESTINAL ULCER HAEMORRHAGE [None]
  - HAEMOGLOBIN DECREASED [None]
  - HELICOBACTER INFECTION [None]
